FAERS Safety Report 4477096-4 (Version None)
Quarter: 2004Q4

REPORT INFORMATION
  Report Type: 
  Country: None (occurrence: None)
  Receive Date: 20041018
  Receipt Date: 20041011
  Transmission Date: 20050328
  Serious: Yes (Hospitalization)
  Sender: FDA-Public Use
  Company Number: 200420073GDDC

PATIENT
  Age: 68 Year
  Sex: Male

DRUGS (12)
  1. DAPA-TABS [Suspect]
     Indication: ESSENTIAL HYPERTENSION
     Dates: end: 20040424
  2. COVERSYL PLUS [Suspect]
     Indication: ESSENTIAL HYPERTENSION
     Dosage: DOSE: 4/1.25
     Route: 048
  3. QUINATE [Suspect]
     Route: 048
     Dates: end: 20040424
  4. INDOCIN [Suspect]
     Indication: GOUT
     Route: 048
     Dates: end: 20040424
  5. MAXOLON [Concomitant]
  6. PANAMAX [Concomitant]
  7. SLOW-K [Concomitant]
     Dates: end: 20040424
  8. NORVASC [Concomitant]
  9. LOSEC [Concomitant]
  10. ASTRIX [Concomitant]
  11. COLGOUT [Concomitant]
     Dates: end: 20040424
  12. ZYLOPRIM [Concomitant]

REACTIONS (4)
  - ANOREXIA [None]
  - ASTHENIA [None]
  - DYSARTHRIA [None]
  - RENAL FAILURE ACUTE [None]
